FAERS Safety Report 9357314 (Version 1)
Quarter: 2013Q2

REPORT INFORMATION
  Report Type: Spontaneous
  Country: US (occurrence: None)
  Receive Date: 20130617
  Receipt Date: 20130617
  Transmission Date: 20140414
  Serious: Yes (Hospitalization, Other)
  Sender: FDA-Public Use
  Company Number: 2013AT000082

PATIENT
  Sex: Male

DRUGS (11)
  1. TESTOPEL [Suspect]
     Indication: SECONDARY HYPOGONADISM
     Route: 058
     Dates: start: 20120319
  2. METFORMIN [Concomitant]
  3. TESTIM [Concomitant]
  4. GLIMEPIRIDE [Concomitant]
  5. SIMVASTATIN [Concomitant]
  6. SYNTHROID [Concomitant]
  7. LISINOPRIL [Concomitant]
  8. POLYETHYLENE GLYCOL [Concomitant]
  9. ECONAZOLE [Concomitant]
  10. TESTIM [Concomitant]
  11. ANDROGEL [Concomitant]

REACTIONS (1)
  - Neck mass [None]
